FAERS Safety Report 12276275 (Version 1)
Quarter: 2016Q2

REPORT INFORMATION
  Report Type: Spontaneous
  Country: AU (occurrence: AU)
  Receive Date: 20160418
  Receipt Date: 20160418
  Transmission Date: 20160815
  Serious: Yes (Life-Threatening)
  Sender: FDA-Public Use
  Company Number: AU-ACTAVIS PTY LTD-2016-08116

PATIENT
  Age: 35 Year
  Sex: Female
  Weight: 100 kg

DRUGS (7)
  1. MEROPENEM (UNKNOWN) [Suspect]
     Active Substance: MEROPENEM
     Dosage: 2 G, Q6H, EXTENDED INFUSIONS OVER 3 H
     Route: 042
  2. CIPROFLOXACIN HYDROCHLORIDE (UNKNOWN) [Suspect]
     Active Substance: CIPROFLOXACIN HYDROCHLORIDE
     Indication: PRODUCT USED FOR UNKNOWN INDICATION
     Dosage: 400 MG, Q8H
     Route: 042
  3. AMIKACIN [Suspect]
     Active Substance: AMIKACIN
     Indication: PRODUCT USED FOR UNKNOWN INDICATION
     Dosage: 1500 MG, DAILY
     Route: 042
  4. PIPERACILLIN AND TAZOBACTAM [Suspect]
     Active Substance: PIPERACILLIN SODIUM\TAZOBACTAM SODIUM
     Indication: PRODUCT USED FOR UNKNOWN INDICATION
     Dosage: 4.5 G, Q6H (IN 30 MIN INFUSIONS)
     Route: 042
  5. MEROPENEM (UNKNOWN) [Suspect]
     Active Substance: MEROPENEM
     Indication: PRODUCT USED FOR UNKNOWN INDICATION
     Dosage: 2 G, Q8H, 30-MIN INFUSIONS
     Route: 042
  6. GENTAMICIN. [Concomitant]
     Active Substance: GENTAMICIN
     Indication: PRODUCT USED FOR UNKNOWN INDICATION
     Dosage: 600 MG, DAILY
     Route: 042
  7. MEROPENEM (UNKNOWN) [Suspect]
     Active Substance: MEROPENEM
     Dosage: 2 G, Q8H, EXTENDED INFUSIONS OVER 4 H
     Route: 042

REACTIONS (1)
  - Drug resistance [Unknown]
